FAERS Safety Report 12776292 (Version 3)
Quarter: 2016Q4

REPORT INFORMATION
  Report Type: Spontaneous
  Country: US (occurrence: US)
  Receive Date: 20160923
  Receipt Date: 20161012
  Transmission Date: 20170207
  Serious: Yes (Hospitalization)
  Sender: FDA-Public Use
  Company Number: US-OTSUKA-2016_022668

PATIENT
  Age: 61 Year
  Sex: Female

DRUGS (1)
  1. ABILIFY MAINTENA [Suspect]
     Active Substance: ARIPIPRAZOLE
     Indication: SCHIZOAFFECTIVE DISORDER BIPOLAR TYPE
     Dosage: 400 MG, UNK
     Route: 030
     Dates: start: 20160824

REACTIONS (5)
  - Psychotic disorder [Recovering/Resolving]
  - Off label use [Unknown]
  - Treatment noncompliance [Unknown]
  - Psychiatric decompensation [Recovering/Resolving]
  - Drug monitoring procedure incorrectly performed [Unknown]
